FAERS Safety Report 12866389 (Version 1)
Quarter: 2016Q4

REPORT INFORMATION
  Report Type: Report from Study
  Country: CA (occurrence: CA)
  Receive Date: 20161020
  Receipt Date: 20161020
  Transmission Date: 20170207
  Serious: Yes (Death)
  Sender: FDA-Public Use
  Company Number: PHHY2016CA130671

PATIENT
  Age: 69 Year
  Sex: Male

DRUGS (2)
  1. SANDOSTATIN [Suspect]
     Active Substance: OCTREOTIDE ACETATE
     Indication: VIPOMA
     Dosage: UNK OT, BID
     Route: 058
     Dates: start: 20160812
  2. SANDOSTATIN LAR DEPOT [Suspect]
     Active Substance: OCTREOTIDE ACETATE
     Indication: VIPOMA
     Dosage: 10 MG, QMO
     Route: 030
     Dates: start: 20160818

REACTIONS (2)
  - Abdominal distension [Unknown]
  - Death [Fatal]

NARRATIVE: CASE EVENT DATE: 201609
